FAERS Safety Report 6337516-7 (Version None)
Quarter: 2009Q3

REPORT INFORMATION
  Report Type: 
  Country: None (occurrence: None)
  Receive Date: 20090902
  Receipt Date: 20090825
  Transmission Date: 20100115
  Serious: Yes (Hospitalization, Other)
  Sender: FDA-Public Use
  Company Number: PHHY2009BR19008

PATIENT
  Age: 27 Year
  Sex: Female
  Weight: 141 kg

DRUGS (5)
  1. VISKEN [Suspect]
     Indication: HYPERTENSION
     Dosage: 10 MG, BID
     Route: 048
     Dates: start: 20090401
  2. VISKEN [Suspect]
     Dosage: 10 MG, TID
     Dates: start: 20090822
  3. FOLIC ACID [Concomitant]
     Dosage: 5 MG, QD
     Route: 048
  4. FERROUS SULFATE TAB [Concomitant]
     Dosage: 1 TABLET (300 MG), QD
     Route: 048
  5. METHYLDOPA [Concomitant]
     Indication: HYPERTENSION
     Dosage: 1 TABLET (500 MG) EVERY 6 HOURS

REACTIONS (15)
  - BLOOD PRESSURE DECREASED [None]
  - CHEST PAIN [None]
  - DRUG EXPOSURE DURING PREGNANCY [None]
  - DRY MOUTH [None]
  - FEELING ABNORMAL [None]
  - FLUID RETENTION [None]
  - HYPERTENSION [None]
  - PALPITATIONS [None]
  - PH URINE DECREASED [None]
  - RASH [None]
  - SKIN ATROPHY [None]
  - TREMOR [None]
  - URINE COLOUR ABNORMAL [None]
  - URINE ODOUR ABNORMAL [None]
  - WEIGHT DECREASED [None]
